FAERS Safety Report 15286423 (Version 1)
Quarter: 2018Q3

REPORT INFORMATION
  Report Type: Spontaneous
  Country: GB (occurrence: GB)
  Receive Date: 20180816
  Receipt Date: 20180816
  Transmission Date: 20181010
  Serious: Yes (Other)
  Sender: FDA-Public Use
  Company Number: GB-009507513-2008-184695-NL

PATIENT
  Age: 23 Year
  Sex: Female

DRUGS (2)
  1. IMPLANON [Suspect]
     Active Substance: ETONOGESTREL
     Dosage: CONTINUING: NO
     Dates: start: 20071205, end: 20081002
  2. RIFAMPIN. [Interacting]
     Active Substance: RIFAMPIN
     Indication: TUBERCULOSIS
     Dosage: CONTINUING: NO
     Dates: start: 200802, end: 200808

REACTIONS (5)
  - Tuberculosis [Unknown]
  - Pregnancy with implant contraceptive [Unknown]
  - Lymph node tuberculosis [Unknown]
  - Pregnancy with implant contraceptive [Unknown]
  - Metrorrhagia [Unknown]

NARRATIVE: CASE EVENT DATE: 200712
